FAERS Safety Report 14137469 (Version 1)
Quarter: 2017Q4

REPORT INFORMATION
  Report Type: Spontaneous
  Country: CN (occurrence: CN)
  Receive Date: 20171027
  Receipt Date: 20171027
  Transmission Date: 20180321
  Serious: Yes (Other)
  Sender: FDA-Public Use
  Company Number: CN-BAYER-2017-199585

PATIENT
  Age: 35 Year
  Sex: Female

DRUGS (1)
  1. YASMIN [Suspect]
     Active Substance: DROSPIRENONE\ETHINYL ESTRADIOL
     Dosage: UNK
     Route: 048

REACTIONS (4)
  - Drug dose omission [None]
  - Dizziness [Not Recovered/Not Resolved]
  - Gastritis erosive [None]
  - Inappropriate schedule of drug administration [None]

NARRATIVE: CASE EVENT DATE: 201709
